FAERS Safety Report 11542613 (Version 2)
Quarter: 2015Q4

REPORT INFORMATION
  Report Type: Spontaneous
  Country: US (occurrence: US)
  Receive Date: 20150923
  Receipt Date: 20151028
  Transmission Date: 20160304
  Serious: No
  Sender: FDA-Public Use
  Company Number: US-PFIZER INC-2015287442

PATIENT
  Age: 93 Year
  Weight: 58 kg

DRUGS (9)
  1. VITAMIN D3 [Concomitant]
     Active Substance: CHOLECALCIFEROL
     Indication: COLON INJURY
  2. COENZYME Q10 [Concomitant]
     Active Substance: UBIDECARENONE
     Indication: CARDIAC DISORDER
     Dosage: 2 TEASPOONS IN MORNING
  3. ATENOLOL. [Concomitant]
     Active Substance: ATENOLOL
     Indication: BLOOD PRESSURE MEASUREMENT
     Dosage: 25 MG, UNK (A HALF TABLET AT NIGHT)
  4. DISOPYRAMIDE [Suspect]
     Active Substance: DISOPYRAMIDE
     Indication: ATRIAL FIBRILLATION
     Dosage: 100 MG, 2X/DAY (ONE IN THE MORNING AND ONE AT NIGHT)
     Route: 048
  5. ISOSORBIDE. [Concomitant]
     Active Substance: ISOSORBIDE
     Indication: BLOOD PRESSURE MEASUREMENT
     Dosage: 30 MG, 1X/DAY IN THE EVENING
  6. FENOFIBRATE. [Concomitant]
     Active Substance: FENOFIBRATE
     Indication: BLOOD CHOLESTEROL
     Dosage: 134 MG, 1X/DAY (IN THE MORNING)
  7. LEVOTHYROXINE. [Concomitant]
     Active Substance: LEVOTHYROXINE
     Indication: THYROID DISORDER
     Dosage: 0.088 MG, 1X/DAY (IN THE MORNING)
  8. VITAMIN D3 [Concomitant]
     Active Substance: CHOLECALCIFEROL
     Indication: BONE DISORDER
     Dosage: 2000 IU, 2X/DAY (IN THE MORNING)
  9. BABY ASPIRIN [Concomitant]
     Active Substance: ASPIRIN
     Indication: ANTICOAGULANT THERAPY
     Dosage: UNK, 2X/DAY (AT NIGHT)

REACTIONS (3)
  - Urinary tract infection [Unknown]
  - Asthenia [Unknown]
  - Cough [Recovered/Resolved]
